FAERS Safety Report 18418696 (Version 1)
Quarter: 2020Q4

REPORT INFORMATION
  Report Type: Spontaneous
  Country: US (occurrence: US)
  Receive Date: 20201023
  Receipt Date: 20201023
  Transmission Date: 20210114
  Serious: No
  Sender: FDA-Public Use
  Company Number: US-B.I. PHARMACEUTICALS,INC./RIDGEFIELD-2020-BI-056869

PATIENT
  Age: 65 Year
  Sex: Female

DRUGS (2)
  1. PRADAXA [Suspect]
     Active Substance: DABIGATRAN ETEXILATE MESYLATE
     Dosage: TWO 75MG CAPSULES EVERY 12 HOURS
     Route: 065
     Dates: start: 2012
  2. PRADAXA [Suspect]
     Active Substance: DABIGATRAN ETEXILATE MESYLATE
     Indication: ATRIAL FIBRILLATION
     Dosage: ONE 150MG CAPSULE EVERY 12 HOURS
     Route: 065
     Dates: start: 2012, end: 2012

REACTIONS (1)
  - Swelling [Recovered/Resolved]

NARRATIVE: CASE EVENT DATE: 2012
